FAERS Safety Report 4749822-8 (Version None)
Quarter: 2005Q3

REPORT INFORMATION
  Report Type: 
  Country: None (occurrence: None)
  Receive Date: 20050822
  Receipt Date: 20050811
  Transmission Date: 20060218
  Serious: Yes (Disabling)
  Sender: FDA-Public Use
  Company Number: 200517217GDDC

PATIENT
  Sex: Male

DRUGS (2)
  1. DAONIL [Suspect]
     Route: 048
  2. VIAGRA [Suspect]
     Route: 048
     Dates: start: 20030101

REACTIONS (2)
  - BLINDNESS UNILATERAL [None]
  - VISUAL DISTURBANCE [None]
